FAERS Safety Report 7961266-4 (Version None)
Quarter: 2011Q4

REPORT INFORMATION
  Report Type: 
  Country: None (occurrence: None)
  Receive Date: 20111207
  Receipt Date: 20111129
  Transmission Date: 20120403
  Serious: No
  Sender: FDA-Public Use
  Company Number: PHEH2011US04182

PATIENT
  Sex: Female

DRUGS (12)
  1. ACIPHEX [Concomitant]
     Dosage: 20 MG, QD
  2. METOPROLOL TARTRATE [Concomitant]
     Dosage: 25 MG, BID
  3. PRAMIPEXOLE DIHYDROCHLORIDE [Concomitant]
     Dosage: 0.5 MG, BID
  4. SIMVASTATIN [Suspect]
     Dosage: 40 MG, UNK
  5. PIROXICAM [Concomitant]
     Dosage: 20 MG, QD
  6. LISINOPRIL [Suspect]
     Dosage: UNK UKN, QD
  7. PROVIGIL [Concomitant]
     Dosage: 200 MG, BID
  8. GILENYA [Suspect]
     Indication: MULTIPLE SCLEROSIS
     Dosage: 0.5 MG, QD
     Route: 048
     Dates: start: 20110909
  9. DOXEPIN [Concomitant]
     Dosage: 200 MG, QD
  10. VESICARE [Concomitant]
     Dosage: 5 MG, QD
  11. EFFIENT [Concomitant]
     Dosage: 10 MG, QD
  12. PREMARIN [Concomitant]
     Dosage: 1.25 MG, QD

REACTIONS (4)
  - ERYTHEMA [None]
  - PRURITUS [None]
  - URTICARIA [None]
  - ALOPECIA [None]
